FAERS Safety Report 17251502 (Version 1)
Quarter: 2020Q1

REPORT INFORMATION
  Report Type: Spontaneous
  Country: GB (occurrence: GB)
  Receive Date: 20200109
  Receipt Date: 20200109
  Transmission Date: 20200409
  Serious: Yes (Hospitalization)
  Sender: FDA-Public Use
  Company Number: GB-ROCHE-2516935

PATIENT
  Age: 23 Month
  Sex: Male
  Weight: 11.9 kg

DRUGS (7)
  1. CALPOL [Concomitant]
     Active Substance: ACETAMINOPHEN
  2. NUROFEN [IBUPROFEN] [Concomitant]
     Active Substance: IBUPROFEN
  3. AMOXICILLIN. [Concomitant]
     Active Substance: AMOXICILLIN
  4. PHENOXYMETHYLPENICILLIN [Concomitant]
     Active Substance: PENICILLIN V
  5. ERYTHROMYCIN. [Concomitant]
     Active Substance: ERYTHROMYCIN
  6. TAMIFLU [Suspect]
     Active Substance: OSELTAMIVIR PHOSPHATE
     Indication: INFLUENZA
     Route: 048
     Dates: start: 20191213, end: 20191218
  7. GENTAMICIN. [Concomitant]
     Active Substance: GENTAMICIN

REACTIONS (1)
  - Haematochezia [Recovering/Resolving]

NARRATIVE: CASE EVENT DATE: 20191219
